FAERS Safety Report 7744757-0 (Version None)
Quarter: 2011Q3

REPORT INFORMATION
  Report Type: 
  Country: None (occurrence: None)
  Receive Date: 20110912
  Receipt Date: 20110912
  Transmission Date: 20111222
  Serious: Yes (Hospitalization)
  Sender: FDA-Public Use
  Company Number: None

PATIENT
  Age: 64 Year
  Sex: Male
  Weight: 77.564 kg

DRUGS (1)
  1. BENZOCAINE [Suspect]
     Indication: RETCHING
     Dosage: ONE DOSE
     Route: 004
     Dates: start: 20110825, end: 20110825

REACTIONS (7)
  - MALAISE [None]
  - HEADACHE [None]
  - VISION BLURRED [None]
  - SOMNOLENCE [None]
  - DIZZINESS [None]
  - DRUG INEFFECTIVE [None]
  - MUSCULOSKELETAL STIFFNESS [None]
